FAERS Safety Report 21650488 (Version 1)
Quarter: 2022Q4

REPORT INFORMATION
  Report Type: Spontaneous
  Country: US (occurrence: US)
  Receive Date: 20221128
  Receipt Date: 20221128
  Transmission Date: 20230113
  Serious: No
  Sender: FDA-Public Use
  Company Number: US-PFIZER INC-PV202200049429

PATIENT
  Age: 52 Year
  Sex: Male

DRUGS (1)
  1. XELJANZ [Suspect]
     Active Substance: TOFACITINIB CITRATE
     Dosage: 10 MG

REACTIONS (6)
  - Product dose omission issue [Unknown]
  - Drug ineffective [Unknown]
  - Abdominal distension [Unknown]
  - Constipation [Unknown]
  - Abdominal discomfort [Unknown]
  - Diarrhoea [Unknown]
